FAERS Safety Report 10024083 (Version 1)
Quarter: 2014Q1

REPORT INFORMATION
  Report Type: Spontaneous
  Country: US (occurrence: None)
  Receive Date: 20140304
  Receipt Date: 20140304
  Transmission Date: 20141002
  Serious: Yes (Other)
  Sender: FDA-Public Use
  Company Number: RB-43718-2012

PATIENT
  Sex: Male

DRUGS (4)
  1. SUBOXONE [Suspect]
     Indication: PRODUCT USED FOR UNKNOWN INDICATION
     Dosage: DOSE DETAILS UNKNOWN TRANSPLACENTAL
     Route: 064
     Dates: end: 201102
  2. SUBUTEX [Suspect]
     Indication: PRODUCT USED FOR UNKNOWN INDICATION
     Route: 064
     Dates: end: 2011
  3. EXCEDRIN [Suspect]
     Indication: MIGRAINE
     Route: 064
     Dates: start: 201010
  4. HYDROCORTISONE [Suspect]
     Indication: RASH
     Dosage: DOSING DETAIL UNKNOWN, TRANSPLACENTAL
     Route: 064
     Dates: start: 201010

REACTIONS (3)
  - Foetal exposure during pregnancy [None]
  - Drug withdrawal syndrome neonatal [None]
  - Exposure during breast feeding [None]
